FAERS Safety Report 21233156 (Version 1)
Quarter: 2022Q3

REPORT INFORMATION
  Report Type: Spontaneous
  Country: GB (occurrence: GB)
  Receive Date: 20220819
  Receipt Date: 20220819
  Transmission Date: 20221027
  Serious: Yes (Hospitalization, Other)
  Sender: FDA-Public Use
  Company Number: GB-002147023-NVSC2022GB178344

PATIENT
  Sex: Female

DRUGS (2)
  1. PREDNISOLONE [Suspect]
     Active Substance: PREDNISOLONE
     Indication: Product used for unknown indication
     Dosage: UNK, FREQUENCY : 1 , FREQUENCY TIME : 1 DAYS, PREDNISOLONE (MANUFACTURER UNKNOWN) 5 MG
     Route: 065
  2. TACROLIMUS [Suspect]
     Active Substance: TACROLIMUS
     Indication: Product used for unknown indication
     Dosage: UNK ,FREQUENCY : 1 , FREQUENCY TIME : 1 DAYS,  ADOPORT (TACROLIMUS) 15 MG
     Route: 065

REACTIONS (2)
  - Renal impairment [Unknown]
  - Pneumonia [Unknown]
